FAERS Safety Report 9458029 (Version 1)
Quarter: 2013Q3

REPORT INFORMATION
  Report Type: Spontaneous
  Country: US (occurrence: US)
  Receive Date: 20130814
  Receipt Date: 20130814
  Transmission Date: 20140515
  Serious: Yes (Hospitalization)
  Sender: FDA-Public Use
  Company Number: US-JNJFOC-20130803882

PATIENT
  Age: 53 Year
  Sex: Male

DRUGS (3)
  1. NUCYNTA ER [Suspect]
     Indication: BACK PAIN
     Dosage: 150 MG TWICE DAILY
     Route: 048
     Dates: end: 20130802
  2. LISINOPRIL [Concomitant]
     Indication: HYPERTENSION
     Route: 048
     Dates: start: 2010
  3. DILTIAZEM [Concomitant]
     Indication: ATRIAL FIBRILLATION
     Route: 048
     Dates: start: 2006

REACTIONS (7)
  - Spinal column stenosis [Unknown]
  - Pain [Not Recovered/Not Resolved]
  - Headache [Recovering/Resolving]
  - Drug withdrawal syndrome [Recovering/Resolving]
  - Hyperhidrosis [Recovering/Resolving]
  - Chills [Recovering/Resolving]
  - Abdominal pain [Recovering/Resolving]
